FAERS Safety Report 5484244-6 (Version None)
Quarter: 2007Q4

REPORT INFORMATION
  Report Type: 
  Country: None (occurrence: None)
  Receive Date: 20071012
  Receipt Date: 20071002
  Transmission Date: 20080405
  Serious: Yes (Other)
  Sender: FDA-Public Use
  Company Number: GB-ABBOTT-07P-167-0419199-00

PATIENT
  Age: 76 Year
  Sex: Female

DRUGS (1)
  1. VALPROATE SODIUM [Suspect]
     Indication: BIPOLAR I DISORDER
     Dosage: NOT REPORTED

REACTIONS (1)
  - DRUG TOXICITY [None]
